FAERS Safety Report 7969406-8 (Version None)
Quarter: 2011Q4

REPORT INFORMATION
  Report Type: 
  Country: None (occurrence: None)
  Receive Date: 20111211
  Receipt Date: 20111128
  Transmission Date: 20120403
  Serious: Yes (Life-Threatening)
  Sender: FDA-Public Use
  Company Number: NO-MYLANLABS-2011S1024476

PATIENT
  Age: 44 Year
  Sex: Male

DRUGS (7)
  1. ESCITALOPRAM [Suspect]
     Indication: DEPRESSION
     Dosage: 5 MG X 1 FIRST 2 DAYS
     Route: 048
     Dates: start: 20110615, end: 20110622
  2. WARFARIN SODIUM [Concomitant]
     Indication: THROMBOSIS PROPHYLAXIS
     Dosage: NOT USED 20110623-20110626 = 4 DAYS BREAK
     Route: 048
  3. OXAZEPAM [Concomitant]
     Indication: PRODUCT USED FOR UNKNOWN INDICATION
     Route: 048
  4. IMOVANE [Concomitant]
     Indication: PRODUCT USED FOR UNKNOWN INDICATION
     Route: 048
  5. BIO-C-VITAMIN [Concomitant]
     Indication: PROPHYLAXIS URINARY TRACT INFECTION
     Dosage: NOT USED 20110623-20110626 = 4 DAYS' BREAK
     Route: 048
  6. BACLOFEN [Suspect]
     Indication: MUSCLE SPASMS
     Dosage: 10MGX1 FROM 201102 = 4MTHS. NOT USED 20110623-20110626 = 4 DAYS' BREAK
     Route: 048
     Dates: start: 20110201, end: 20110628
  7. HIPREX [Concomitant]
     Indication: PROPHYLAXIS URINARY TRACT INFECTION
     Dosage: NOT USED 20110623-20110626 = 4 DAYS' BREAK
     Route: 048

REACTIONS (10)
  - MYDRIASIS [None]
  - MUSCLE RIGIDITY [None]
  - AGGRESSION [None]
  - STUPOR [None]
  - CONFUSIONAL STATE [None]
  - EYE MOVEMENT DISORDER [None]
  - SUICIDE ATTEMPT [None]
  - HYPOVENTILATION [None]
  - HYPOREFLEXIA [None]
  - TACHYCARDIA [None]
